FAERS Safety Report 9486733 (Version 2)
Quarter: 2013Q3

REPORT INFORMATION
  Report Type: Spontaneous
  Country: US (occurrence: US)
  Receive Date: 20130829
  Receipt Date: 20130829
  Transmission Date: 20140515
  Serious: No
  Sender: FDA-Public Use
  Company Number: US-BRISTOL-MYERS SQUIBB COMPANY-18967141

PATIENT
  Age: 81 Year
  Sex: Female
  Weight: 77.1 kg

DRUGS (2)
  1. ONGLYZA TABS 5 MG [Suspect]
     Indication: DIABETES MELLITUS
  2. KOMBIGLYZE XR [Suspect]
     Indication: DIABETES MELLITUS
     Dosage: 250 (UNIT NOT REPORTED)

REACTIONS (1)
  - Blood glucose increased [Unknown]
